FAERS Safety Report 5846710-0 (Version None)
Quarter: 2008Q3

REPORT INFORMATION
  Report Type: 
  Country: None (occurrence: None)
  Receive Date: 20080815
  Receipt Date: 20080806
  Transmission Date: 20090109
  Serious: Yes (Hospitalization, Other)
  Sender: FDA-Public Use
  Company Number: FR-ABBOTT-08P-056-0469432-00

PATIENT
  Age: 33 Year
  Sex: Female

DRUGS (11)
  1. DEPAKOTE [Suspect]
     Indication: SCHIZOPHRENIA, PARANOID TYPE
     Dosage: 250 MG TABLETS
     Route: 048
  2. DEPAKOTE [Suspect]
     Dosage: 250 MG TABLETS
     Route: 048
     Dates: end: 20080604
  3. DEPAKOTE [Suspect]
     Dosage: 250 MG TABLETS
     Route: 048
     Dates: start: 20080605, end: 20080608
  4. DEPAKOTE [Suspect]
     Dosage: 250 MG TABLETS
     Route: 048
     Dates: start: 20080612
  5. CYAMEMAZINE [Suspect]
     Indication: SCHIZOPHRENIA, PARANOID TYPE
     Route: 048
     Dates: end: 20080609
  6. CYAMEMAZINE [Suspect]
     Route: 048
     Dates: start: 20080610
  7. ZOPICLONE [Suspect]
     Indication: DRUG USE FOR UNKNOWN INDICATION
     Route: 048
     Dates: end: 20080611
  8. ARIPIPRAZOLE [Suspect]
     Indication: SCHIZOPHRENIA, PARANOID TYPE
     Route: 048
     Dates: start: 20080517
  9. OXAZEPAM [Suspect]
     Indication: SCHIZOPHRENIA, PARANOID TYPE
     Route: 048
     Dates: start: 20080517, end: 20080609
  10. OXAZEPAM [Suspect]
     Route: 048
     Dates: start: 20080610
  11. ALIMEMAZINE TARTRATE [Concomitant]
     Indication: DRUG USE FOR UNKNOWN INDICATION

REACTIONS (4)
  - CONFUSIONAL STATE [None]
  - DEPRESSED LEVEL OF CONSCIOUSNESS [None]
  - DISORIENTATION [None]
  - INCOHERENT [None]
